FAERS Safety Report 4762281-4 (Version None)
Quarter: 2005Q3

REPORT INFORMATION
  Report Type: 
  Country: None (occurrence: None)
  Receive Date: 20050907
  Receipt Date: 20050826
  Transmission Date: 20060218
  Serious: Yes (Other)
  Sender: FDA-Public Use
  Company Number: GB-BOEHRINGER INGELHEIM PHARMACEUTICALS, INC.-2005-BP-15519YA

PATIENT
  Age: 72 Year
  Sex: Male

DRUGS (12)
  1. FLOMAX [Suspect]
     Indication: MICTURITION DISORDER
     Route: 048
     Dates: start: 20050101, end: 20050501
  2. ISOPHANE INSULIN [Concomitant]
  3. ASPIRIN [Concomitant]
     Route: 048
  4. FUROSEMIDE [Concomitant]
     Route: 048
  5. ALBUTEROL SULFATE HFA [Concomitant]
  6. EPROSARTAN MESILATE [Concomitant]
  7. QUINIDINE SULFATE [Concomitant]
  8. ACETAMINOPHEN W/ CODEINE [Concomitant]
  9. AMITRIPTYLINE HCL [Concomitant]
  10. OMEPRAZOLE [Concomitant]
  11. SIMVASTATIN [Concomitant]
  12. DIPYRIDAMOLE [Concomitant]

REACTIONS (2)
  - DYSSTASIA [None]
  - PAIN IN EXTREMITY [None]
